FAERS Safety Report 8773249 (Version 2)
Quarter: 2012Q4

REPORT INFORMATION
  Report Type: 
  Country: US (occurrence: US)
  Receive Date: 20120907
  Receipt Date: 20121012
  Transmission Date: 20130627
  Serious: Yes (Disabling, Other)
  Sender: FDA-Public Use
  Company Number: US-009507513-1208USA007921

PATIENT
  Sex: Female

DRUGS (1)
  1. INTRONA [Suspect]
     Indication: HEPATITIS C
     Dosage: UNK
     Dates: start: 19970101, end: 19970401

REACTIONS (9)
  - Bipolar disorder [Unknown]
  - Back disorder [Unknown]
  - Back pain [Unknown]
  - Diabetes mellitus [Unknown]
  - Sleep terror [Unknown]
  - Mental impairment [Unknown]
  - Anxiety [Unknown]
  - Malaise [Unknown]
  - Mental disorder [Unknown]
